FAERS Safety Report 13233431 (Version 1)
Quarter: 2017Q1

REPORT INFORMATION
  Report Type: Spontaneous
  Country: CN (occurrence: CN)
  Receive Date: 20170215
  Receipt Date: 20170215
  Transmission Date: 20170428
  Serious: Yes (Other)
  Sender: FDA-Public Use
  Company Number: CN-SUN PHARMACEUTICAL INDUSTRIES LTD-2017RR-133215

PATIENT
  Age: 54 Year
  Sex: Female

DRUGS (4)
  1. IMATINIB [Suspect]
     Active Substance: IMATINIB
     Indication: PANCREATIC NEOPLASM
     Dosage: 300 MG, QD
     Route: 048
  2. THYMOSIN [Concomitant]
     Active Substance: THYMOSIN
     Indication: METASTASES TO LIVER
  3. THYMOSIN [Concomitant]
     Active Substance: THYMOSIN
     Indication: PANCREATIC NEOPLASM
     Dosage: 1.6 MG, 2/WEEK, FOR 4 WEEKS
     Route: 058
  4. IMATINIB [Suspect]
     Active Substance: IMATINIB
     Indication: METASTASES TO LIVER

REACTIONS (1)
  - Leiomyosarcoma [Unknown]
